FAERS Safety Report 23514578 (Version 1)
Quarter: 2024Q1

REPORT INFORMATION
  Report Type: Spontaneous
  Country: US (occurrence: US)
  Receive Date: 20240212
  Receipt Date: 20240212
  Transmission Date: 20240409
  Serious: No
  Sender: FDA-Public Use
  Company Number: US-009507513-2401USA016038

PATIENT
  Age: 22 Year
  Sex: Female
  Weight: 40 kg

DRUGS (1)
  1. BRIDION [Suspect]
     Active Substance: SUGAMMADEX
     Indication: Neuromuscular blockade reversal
     Dosage: 80 MILLIGRAM

REACTIONS (1)
  - Maternal exposure during delivery [Unknown]
